FAERS Safety Report 19189907 (Version 1)
Quarter: 2021Q2

REPORT INFORMATION
  Report Type: Spontaneous
  Country: JP (occurrence: JP)
  Receive Date: 20210428
  Receipt Date: 20210428
  Transmission Date: 20210717
  Serious: Yes (Other)
  Sender: FDA-Public Use
  Company Number: JP-PFIZER INC-2021418571

PATIENT

DRUGS (2)
  1. SOLDACTONE [Suspect]
     Active Substance: CANRENOATE POTASSIUM
     Dosage: UNK
     Route: 042
  2. VANCOMYCIN HCL [Suspect]
     Active Substance: VANCOMYCIN HYDROCHLORIDE
     Dosage: UNK

REACTIONS (3)
  - Renal impairment [Unknown]
  - Infection [Unknown]
  - Blood potassium increased [Unknown]
